FAERS Safety Report 25705889 (Version 1)
Quarter: 2025Q3

REPORT INFORMATION
  Report Type: Spontaneous
  Country: US (occurrence: None)
  Receive Date: 20250819
  Receipt Date: 20250819
  Transmission Date: 20251021
  Serious: Yes (Death)
  Sender: FDA-CTU
  Company Number: None

PATIENT
  Age: 80 Year
  Sex: Female

DRUGS (2)
  1. TENECTEPLASE [Suspect]
     Active Substance: TENECTEPLASE
  2. Tenecetplase [Concomitant]

REACTIONS (4)
  - Bradycardia [None]
  - Cerebral haemorrhage [None]
  - Respiratory failure [None]
  - Refusal of treatment by patient [None]

NARRATIVE: CASE EVENT DATE: 20241107
